FAERS Safety Report 8463833 (Version 3)
Quarter: 2013Q3

REPORT INFORMATION
  Report Type: Report from Study
  Country: CA (occurrence: CA)
  Receive Date: 20120316
  Receipt Date: 20130705
  Transmission Date: 20140515
  Serious: Yes (Hospitalization)
  Sender: FDA-Public Use
  Company Number: CA-ABBOTT-12P-028-0912409-01

PATIENT
  Age: 29 Year
  Sex: Female

DRUGS (16)
  1. HUMIRA [Suspect]
     Indication: CROHN^S DISEASE
     Route: 058
     Dates: start: 20090811, end: 20090811
  2. HUMIRA [Suspect]
     Route: 058
     Dates: start: 200908, end: 200908
  3. HUMIRA [Suspect]
     Route: 058
     Dates: start: 200909, end: 20110906
  4. REMICADE [Concomitant]
     Indication: CROHN^S DISEASE
     Dates: start: 20110914, end: 20120109
  5. ELAVIL [Concomitant]
     Indication: ABDOMINAL PAIN
     Dates: start: 200611
  6. BENTYLOL [Concomitant]
     Indication: ABDOMINAL PAIN
     Dates: start: 200410
  7. CALCIUM WITH VITAMIN D [Concomitant]
     Indication: PROPHYLAXIS
     Dates: start: 200611
  8. TYLENOL WITH CODEINE [Concomitant]
     Indication: HEADACHE
     Dates: start: 20100218
  9. NASONEX [Concomitant]
     Indication: RHINITIS
     Dosage: 1 SPRAY BID
     Dates: start: 20100408
  10. GLAXAL BASE [Concomitant]
     Indication: DRY SKIN
     Dates: start: 20100712
  11. IBUPROFENE [Concomitant]
     Indication: ABDOMINAL PAIN
     Dates: start: 20100712
  12. IMURAN [Concomitant]
     Indication: CROHN^S DISEASE
     Dates: start: 20110818
  13. PREDNISONE [Concomitant]
     Indication: CROHN^S DISEASE
     Dosage: TAPERING DOSE
     Dates: start: 20110901
  14. FOSAMAX [Concomitant]
     Indication: OSTEOPOROSIS PROPHYLAXIS
     Dates: start: 20110527
  15. SERAX [Concomitant]
     Indication: INSOMNIA
     Dates: start: 20110516
  16. PANTOLOC [Concomitant]
     Indication: DYSPEPSIA
     Dates: start: 20110517

REACTIONS (1)
  - Ileus [Not Recovered/Not Resolved]
